FAERS Safety Report 5473151-0 (Version None)
Quarter: 2007Q4

REPORT INFORMATION
  Report Type: 
  Country: None (occurrence: None)
  Receive Date: 20071001
  Receipt Date: 20070920
  Transmission Date: 20080405
  Serious: Yes (Hospitalization)
  Sender: FDA-Public Use
  Company Number: JP-BAYER-200710670BYL

PATIENT
  Age: 67 Year
  Sex: Female

DRUGS (32)
  1. ADALAT [Suspect]
     Route: 048
  2. REMICADE [Suspect]
     Indication: RHEUMATOID ARTHRITIS
     Route: 042
     Dates: start: 20041021
  3. REMICADE [Suspect]
     Route: 042
     Dates: start: 20041118
  4. RHEUMATREX [Suspect]
  5. RIMATIL [Suspect]
     Route: 048
  6. MOBIC [Suspect]
  7. MUCOSTA [Suspect]
     Route: 048
  8. BAYLOTENSIN [Suspect]
     Route: 048
  9. DIBETOS [Suspect]
     Route: 048
  10. CATAPRES [Suspect]
     Route: 048
  11. GLIMICRON [Suspect]
     Route: 048
  12. BASEN [Suspect]
     Route: 048
  13. METHYCOBAL [Suspect]
     Route: 048
  14. LIPITOR [Suspect]
     Route: 048
  15. PREDONINE [Concomitant]
     Dosage: TOTAL DAILY DOSE: 55 MG
     Route: 048
     Dates: start: 20041129
  16. PREDONINE [Concomitant]
     Dosage: TOTAL DAILY DOSE: 15 MG
     Route: 048
     Dates: start: 20050112
  17. PREDONINE [Concomitant]
     Dosage: TOTAL DAILY DOSE: 60 MG
     Route: 048
     Dates: start: 20041128
  18. PREDONINE [Concomitant]
     Dosage: TOTAL DAILY DOSE: 17.5 MG
     Route: 048
     Dates: start: 20050105
  19. PREDONINE [Concomitant]
     Dosage: TOTAL DAILY DOSE: 30 MG
     Route: 048
     Dates: start: 20041201
  20. PREDONINE [Concomitant]
     Dosage: TOTAL DAILY DOSE: 30 MG
     Route: 048
     Dates: start: 20041130
  21. PREDONINE [Concomitant]
     Dosage: TOTAL DAILY DOSE: 40 MG
     Route: 048
     Dates: start: 20041201
  22. PREDONINE [Concomitant]
     Dosage: TOTAL DAILY DOSE: 20 MG
     Route: 048
     Dates: start: 20041210
  23. NU-LOTAN [Concomitant]
     Dosage: TOTAL DAILY DOSE: 50 MG
     Route: 048
     Dates: start: 20041123
  24. INSULIN [Concomitant]
     Route: 065
     Dates: start: 20041123
  25. FAMOTIDINE [Concomitant]
     Route: 048
     Dates: start: 20041123
  26. FANGIZONE [Concomitant]
     Route: 065
     Dates: start: 20041123
  27. ISODINE [Concomitant]
     Route: 065
     Dates: start: 20041123
  28. DIART [Concomitant]
     Dosage: TOTAL DAILY DOSE: 60 MG
     Route: 048
     Dates: start: 20041203
  29. CLARITHROMYCIN [Concomitant]
     Dosage: TOTAL DAILY DOSE: 400 MG
     Route: 065
     Dates: start: 20041209
  30. KETOPROFEN [Concomitant]
     Route: 065
     Dates: start: 20041216
  31. SIMAVASTATIN [Concomitant]
     Route: 048
     Dates: start: 20041220
  32. URSO 250 [Concomitant]
     Dosage: TOTAL DAILY DOSE: 150 MG
     Route: 048
     Dates: start: 20041222

REACTIONS (3)
  - GINGIVITIS [None]
  - PNEUMOCYSTIS JIROVECI INFECTION [None]
  - PNEUMONIA CYTOMEGALOVIRAL [None]
